FAERS Safety Report 12609258 (Version 1)
Quarter: 2016Q3

REPORT INFORMATION
  Report Type: Spontaneous
  Country: US (occurrence: US)
  Receive Date: 20160801
  Receipt Date: 20160801
  Transmission Date: 20161109
  Serious: Yes (Hospitalization, Other)
  Sender: FDA-Public Use
  Company Number: US-AMGEN-USASP2016097488

PATIENT
  Age: 64 Year
  Sex: Female

DRUGS (1)
  1. DENOSUMAB [Suspect]
     Active Substance: DENOSUMAB
     Indication: PLASMA CELL MYELOMA
     Dosage: 120 MG, UNK
     Route: 058

REACTIONS (5)
  - Femur fracture [Unknown]
  - Renal failure [Unknown]
  - Hypocalcaemia [Unknown]
  - Osteolysis [Unknown]
  - Anaemia [Unknown]
